FAERS Safety Report 10215756 (Version 1)
Quarter: 2014Q2

REPORT INFORMATION
  Report Type: Spontaneous
  Country: MY (occurrence: MY)
  Receive Date: 20140604
  Receipt Date: 20140604
  Transmission Date: 20141212
  Serious: Yes (Other)
  Sender: FDA-Public Use
  Company Number: MY-JNJFOC-20140516867

PATIENT
  Age: 30 Year
  Sex: Female

DRUGS (1)
  1. INVEGA SUSTENNA [Suspect]
     Indication: SCHIZOPHRENIA
     Route: 030

REACTIONS (3)
  - Asthenia [Not Recovered/Not Resolved]
  - Dyspareunia [Not Recovered/Not Resolved]
  - Somnolence [Not Recovered/Not Resolved]
